FAERS Safety Report 4300123-1 (Version None)
Quarter: 2004Q1

REPORT INFORMATION
  Report Type: 
  Country: None (occurrence: None)
  Receive Date: 20040218
  Receipt Date: 20040205
  Transmission Date: 20041129
  Serious: Yes (Other)
  Sender: FDA-Public Use
  Company Number: DE-JNJFOC-20040201568

PATIENT
  Age: 15 Year
  Sex: Male

DRUGS (2)
  1. RISPERDAL [Suspect]
     Indication: SCHIZOPHRENIA
     Dates: start: 20040201
  2. LORAZEPAM [Concomitant]

REACTIONS (4)
  - AGRANULOCYTOSIS [None]
  - CONDITION AGGRAVATED [None]
  - GRANULOCYTOPENIA [None]
  - INFECTION [None]
